FAERS Safety Report 23429789 (Version 2)
Quarter: 2024Q1

REPORT INFORMATION
  Report Type: Spontaneous
  Country: US (occurrence: US)
  Receive Date: 20240122
  Receipt Date: 20240201
  Transmission Date: 20240410
  Serious: No
  Sender: FDA-Public Use
  Company Number: US-Calliditas-2024CAL00061

PATIENT
  Age: 51 Year
  Sex: Male

DRUGS (2)
  1. TARPEYO [Suspect]
     Active Substance: BUDESONIDE
     Indication: Haematuria
     Route: 048
     Dates: start: 20231208
  2. CHLORTHALIDONE [Concomitant]
     Active Substance: CHLORTHALIDONE

REACTIONS (10)
  - Nausea [Recovering/Resolving]
  - Flatulence [Recovering/Resolving]
  - Sleep disorder [Not Recovered/Not Resolved]
  - Fluid retention [Not Recovered/Not Resolved]
  - Oedema [Not Recovered/Not Resolved]
  - Blood pressure increased [Not Recovered/Not Resolved]
  - Acne [Not Recovered/Not Resolved]
  - Dry skin [Not Recovered/Not Resolved]
  - Cushingoid [Not Recovered/Not Resolved]
  - Off label use [Not Recovered/Not Resolved]

NARRATIVE: CASE EVENT DATE: 20231215
